FAERS Safety Report 21332273 (Version 1)
Quarter: 2022Q3

REPORT INFORMATION
  Report Type: Spontaneous
  Country: JP (occurrence: JP)
  Receive Date: 20220914
  Receipt Date: 20220914
  Transmission Date: 20221026
  Serious: Yes (Other)
  Sender: FDA-Public Use
  Company Number: JP-SUN PHARMACEUTICAL INDUSTRIES LTD-2022RR-354294

PATIENT
  Age: 20 Year
  Sex: Female

DRUGS (10)
  1. IBANDRONIC ACID [Suspect]
     Active Substance: IBANDRONIC ACID
     Indication: Prophylaxis against graft versus host disease
     Dosage: 1 MILLIGRAM, MONTHLY, FROM DAY 14 TO 248
     Route: 065
  2. METHYLPREDNISOLONE [Suspect]
     Active Substance: METHYLPREDNISOLONE
     Indication: Epstein-Barr virus associated lymphoproliferative disorder
     Dosage: 2700 MILLIGRAM/ BODY, HIGH DOSE
     Route: 065
  3. METHYLPREDNISOLONE [Suspect]
     Active Substance: METHYLPREDNISOLONE
     Indication: Haemophagocytic lymphohistiocytosis
     Dosage: 1 MILLIGRAM/KILOGRAM
     Route: 065
  4. METHYLPREDNISOLONE [Suspect]
     Active Substance: METHYLPREDNISOLONE
     Indication: Graft versus host disease
  5. DEXAMETHASONE [Suspect]
     Active Substance: DEXAMETHASONE
     Indication: Haemophagocytic lymphohistiocytosis
     Dosage: 220 MILLIGRAM/BODY,  UNK
     Route: 065
  6. DEXAMETHASONE [Suspect]
     Active Substance: DEXAMETHASONE
     Indication: Epstein-Barr virus associated lymphoproliferative disorder
  7. ALFACALCIDOL [Suspect]
     Active Substance: ALFACALCIDOL
     Indication: Prophylaxis against graft versus host disease
     Dosage: 2 MICROGRAM, DAILY, FROM DAY 45
     Route: 065
  8. ROMOSOZUMAB [Suspect]
     Active Substance: ROMOSOZUMAB
     Indication: Prophylaxis against graft versus host disease
     Dosage: 105 MILLIGRAM, MONTHLY, FROM DAY 276
     Route: 065
  9. ETOPOSIDE [Suspect]
     Active Substance: ETOPOSIDE
     Indication: Epstein-Barr virus associated lymphoproliferative disorder
     Dosage: 2500 MILLIGRAM/SQ. METER, LONG-TERM
     Route: 065
  10. ETOPOSIDE [Suspect]
     Active Substance: ETOPOSIDE
     Indication: Haemophagocytic lymphohistiocytosis

REACTIONS (3)
  - Spinal compression fracture [Unknown]
  - Spinal pain [Unknown]
  - Osteonecrosis [Unknown]
